FAERS Safety Report 11599092 (Version 1)
Quarter: 2015Q4

REPORT INFORMATION
  Report Type: Spontaneous
  Country: US (occurrence: US)
  Receive Date: 20151006
  Receipt Date: 20151006
  Transmission Date: 20160304
  Serious: Yes (Hospitalization, Other)
  Sender: FDA-Public Use
  Company Number: US-UNITED THERAPEUTICS-UNT-2015-007646

PATIENT
  Age: 57 Year
  Sex: Female
  Weight: 63.49 kg

DRUGS (6)
  1. REMODULIN [Suspect]
     Active Substance: TREPROSTINIL
     Dosage: 0.032 ?G/KG/MIN, CONTINUING
     Route: 041
  2. REMODULIN [Suspect]
     Active Substance: TREPROSTINIL
     Dosage: 0.047 ?G/KG, CONTINUING
     Route: 041
  3. REVATIO [Concomitant]
     Active Substance: SILDENAFIL CITRATE
     Indication: PRODUCT USED FOR UNKNOWN INDICATION
  4. COUMADIN [Concomitant]
     Active Substance: WARFARIN SODIUM
     Indication: PRODUCT USED FOR UNKNOWN INDICATION
  5. REMODULIN [Suspect]
     Active Substance: TREPROSTINIL
     Indication: PULMONARY HYPERTENSION
     Dosage: 0.028 ?G/KG/MIN, CONTINUING
     Route: 041
     Dates: start: 20141113
  6. REMODULIN [Suspect]
     Active Substance: TREPROSTINIL
     Dosage: 0.037 ?G/KG, CONTINUING
     Route: 041

REACTIONS (7)
  - Lung infection [Unknown]
  - Sinus congestion [Unknown]
  - Headache [Unknown]
  - Diarrhoea [Unknown]
  - Pneumonia [Not Recovered/Not Resolved]
  - Hypotension [Unknown]
  - Fatigue [Unknown]

NARRATIVE: CASE EVENT DATE: 2015
